FAERS Safety Report 14915064 (Version 1)
Quarter: 2018Q2

REPORT INFORMATION
  Report Type: Spontaneous
  Country: US (occurrence: US)
  Receive Date: 20180501
  Receipt Date: 20180501
  Transmission Date: 20180711
  Serious: Yes (Death, Life-Threatening)
  Sender: FDA-Public Use
  Company Number: None

PATIENT
  Age: 79 Year
  Sex: Female
  Weight: 49.9 kg

DRUGS (6)
  1. NORVASC [Concomitant]
     Active Substance: AMLODIPINE BESYLATE
  2. ARMOUR THYROID [Concomitant]
     Active Substance: THYROID, PORCINE
  3. ACTONEL [Concomitant]
     Active Substance: RISEDRONATE SODIUM
  4. LEXISCAN [Suspect]
     Active Substance: REGADENOSON
  5. WOMANS MULTIVITAMIN [Concomitant]
  6. FOLIC ACID. [Concomitant]
     Active Substance: FOLIC ACID

REACTIONS (4)
  - Fatigue [None]
  - Fall [None]
  - Chest pain [None]
  - Cardiac arrest [None]

NARRATIVE: CASE EVENT DATE: 20171222
